FAERS Safety Report 20007213 (Version 2)
Quarter: 2021Q4

REPORT INFORMATION
  Report Type: Spontaneous
  Country: GB (occurrence: GB)
  Receive Date: 20211028
  Receipt Date: 20211030
  Transmission Date: 20220303
  Serious: Yes (Other)
  Sender: FDA-Public Use
  Company Number: None

PATIENT
  Age: 57 Year
  Sex: Female
  Weight: 70.76 kg

DRUGS (2)
  1. AMLODIPINE [Suspect]
     Active Substance: AMLODIPINE BESYLATE
     Indication: Hypertension
     Dosage: 5 MG, QD ONCE IN THE MORNING
     Route: 048
     Dates: start: 20210918, end: 20211010
  2. ACETAMINOPHEN [Concomitant]
     Active Substance: ACETAMINOPHEN
     Indication: Ill-defined disorder
     Dosage: UNK (COATED 90 PERCENT)
     Route: 065

REACTIONS (5)
  - Panic attack [Unknown]
  - Hot flush [Unknown]
  - Dyspnoea [Unknown]
  - Paraesthesia oral [Unknown]
  - Anxiety [Unknown]
